FAERS Safety Report 25994340 (Version 2)
Quarter: 2025Q4

REPORT INFORMATION
  Report Type: Spontaneous
  Country: CN (occurrence: CN)
  Receive Date: 20251104
  Receipt Date: 20251108
  Transmission Date: 20260118
  Serious: Yes (Hospitalization)
  Sender: NOVARTIS
  Company Number: CN-002147023-NVSC2025CN166399

PATIENT
  Age: 78 Year
  Sex: Female

DRUGS (1)
  1. TRILEPTAL [Suspect]
     Active Substance: OXCARBAZEPINE
     Indication: Epilepsy
     Dosage: 0.15 G, BID
     Route: 048
     Dates: start: 20250725, end: 20250816

REACTIONS (9)
  - Drug eruption [Recovering/Resolving]
  - Asthenia [Unknown]
  - Tachypnoea [Unknown]
  - Erythema [Recovering/Resolving]
  - Pruritus [Recovered/Resolved]
  - Papule [Recovering/Resolving]
  - Lip erosion [Unknown]
  - Mucosal ulceration [Unknown]
  - Macule [Recovering/Resolving]

NARRATIVE: CASE EVENT DATE: 20250806
